FAERS Safety Report 12470863 (Version 1)
Quarter: 2016Q2

REPORT INFORMATION
  Report Type: Spontaneous
  Country: US (occurrence: None)
  Receive Date: 20160615
  Receipt Date: 20160615
  Transmission Date: 20160815
  Serious: Yes (Other)
  Sender: FDA-Public Use
  Company Number: None

PATIENT
  Age: 46 Year
  Sex: Female
  Weight: 67.4 kg

DRUGS (2)
  1. OLANZAPINE GENERIC [Suspect]
     Active Substance: OLANZAPINE
     Indication: POST-TRAUMATIC STRESS DISORDER
     Route: 048
     Dates: start: 2004, end: 2012
  2. OLANZAPINE GENERIC [Suspect]
     Active Substance: OLANZAPINE
     Indication: MAJOR DEPRESSION
     Route: 048
     Dates: start: 2004, end: 2012

REACTIONS (2)
  - Drug ineffective [None]
  - Hallucination [None]
